FAERS Safety Report 14180437 (Version 1)
Quarter: 2017Q4

REPORT INFORMATION
  Report Type: Spontaneous
  Country: US (occurrence: US)
  Receive Date: 20171110
  Receipt Date: 20171110
  Transmission Date: 20180321
  Serious: No
  Sender: FDA-Public Use
  Company Number: US-BAYER-2017-207112

PATIENT
  Age: 39 Year
  Sex: Female

DRUGS (1)
  1. LEVITRA [Suspect]
     Active Substance: VARDENAFIL HYDROCHLORIDE TRIHYDRATE
     Indication: ERECTILE DYSFUNCTION
     Dosage: 10 MG, UNK

REACTIONS (3)
  - Exposure via body fluid [None]
  - Pruritus generalised [Recovered/Resolved]
  - Vulvovaginal pruritus [None]

NARRATIVE: CASE EVENT DATE: 20030818
